FAERS Safety Report 7035262-8 (Version None)
Quarter: 2010Q4

REPORT INFORMATION
  Report Type: 
  Country: None (occurrence: None)
  Receive Date: 20101008
  Receipt Date: 20100930
  Transmission Date: 20110411
  Serious: Yes (Other)
  Sender: FDA-Public Use
  Company Number: A0882082A

PATIENT
  Age: 83 Year
  Sex: Female

DRUGS (4)
  1. VALTREX [Suspect]
     Dosage: 1G THREE TIMES PER DAY
     Route: 048
     Dates: start: 20100910
  2. COUMADIN [Concomitant]
  3. NADOLOL [Concomitant]
  4. CRESTOR [Concomitant]

REACTIONS (4)
  - APHAGIA [None]
  - DIZZINESS [None]
  - DRUG INEFFECTIVE [None]
  - INCOHERENT [None]
